FAERS Safety Report 17911307 (Version 2)
Quarter: 2020Q3

REPORT INFORMATION
  Report Type: Spontaneous
  Country: DE (occurrence: DE)
  Receive Date: 20200618
  Receipt Date: 20200709
  Transmission Date: 20201103
  Serious: Yes (Congenital Anomaly, Other)
  Sender: FDA-Public Use
  Company Number: DE-EMD SERONO-E2B_90077988

PATIENT
  Age: 8 Week
  Sex: Male
  Weight: 4 kg

DRUGS (5)
  1. GYNOKADIN                          /00045401/ [Suspect]
     Active Substance: ESTRADIOL
     Indication: INFERTILITY FEMALE
     Route: 064
  2. METFORMIN [Suspect]
     Active Substance: METFORMIN HYDROCHLORIDE
     Indication: GLUCOSE TOLERANCE IMPAIRED
     Route: 064
  3. PROLUTEX [Suspect]
     Active Substance: PROGESTERONE
     Indication: INFERTILITY FEMALE
     Route: 064
  4. UTROGEST [Suspect]
     Active Substance: PROGESTERONE
     Indication: INFERTILITY FEMALE
     Route: 064
  5. PROGYNOVA                          /00045402/ [Suspect]
     Active Substance: ESTRADIOL VALERATE
     Indication: INFERTILITY FEMALE
     Route: 064

REACTIONS (3)
  - Atrial septal defect [Unknown]
  - Foetal exposure during pregnancy [Unknown]
  - Congenital coronary artery malformation [Unknown]
